FAERS Safety Report 4377645-0 (Version None)
Quarter: 2004Q2

REPORT INFORMATION
  Report Type: 
  Country: None (occurrence: None)
  Receive Date: 20040615
  Receipt Date: 20040603
  Transmission Date: 20050107
  Serious: Yes (Other)
  Sender: FDA-Public Use
  Company Number: PHBS2004JO07415

PATIENT
  Age: 44 Year
  Sex: Female
  Weight: 85 kg

DRUGS (2)
  1. GLEEVEC [Suspect]
     Indication: CHRONIC MYELOID LEUKAEMIA
     Dosage: 400 MG/D
     Route: 048
     Dates: start: 20030126
  2. DELZIUM [Concomitant]
     Route: 065

REACTIONS (6)
  - DIZZINESS [None]
  - EAR PAIN [None]
  - EYE PAIN [None]
  - HEADACHE [None]
  - PAPILLOEDEMA [None]
  - VISION BLURRED [None]
